FAERS Safety Report 5121707-7 (Version None)
Quarter: 2006Q4

REPORT INFORMATION
  Report Type: 
  Country: None (occurrence: None)
  Receive Date: 20061006
  Receipt Date: 20061003
  Transmission Date: 20070319
  Serious: Yes (Other)
  Sender: FDA-Public Use
  Company Number: GB-GLAXOSMITHKLINE-B0441075A

PATIENT
  Age: 31 Year
  Sex: Male
  Weight: 101 kg

DRUGS (1)
  1. BUPROPION HYDROCHLORIDE [Suspect]
     Route: 048
     Dates: start: 20060904, end: 20060910

REACTIONS (3)
  - BLOOD CREATINE PHOSPHOKINASE INCREASED [None]
  - LIVER FUNCTION TEST ABNORMAL [None]
  - MALAISE [None]
